FAERS Safety Report 25342964 (Version 2)
Quarter: 2025Q2

REPORT INFORMATION
  Report Type: Spontaneous
  Country: MX (occurrence: MX)
  Receive Date: 20250521
  Receipt Date: 20250528
  Transmission Date: 20250716
  Serious: Yes (Hospitalization)
  Sender: NOVARTIS
  Company Number: MX-002147023-NVSC2025MX080045

PATIENT
  Age: 59 Year
  Sex: Male

DRUGS (9)
  1. BASILIXIMAB [Suspect]
     Active Substance: BASILIXIMAB
     Indication: Product used for unknown indication
     Route: 042
  2. BASILIXIMAB [Suspect]
     Active Substance: BASILIXIMAB
     Route: 042
  3. LOSARTAN [Concomitant]
     Active Substance: LOSARTAN
     Indication: Hypertension
     Dosage: 50 MG, Q12H
     Route: 048
  4. PREDNISONE [Concomitant]
     Active Substance: PREDNISONE
     Indication: Prophylaxis
     Route: 065
  5. PREDNISONE [Concomitant]
     Active Substance: PREDNISONE
     Route: 065
  6. MYCOPHENOLATE MOFETIL [Concomitant]
     Active Substance: MYCOPHENOLATE MOFETIL
     Indication: Prophylaxis
     Dosage: 500 MG, Q12H
     Route: 048
  7. TACROLIMUS [Concomitant]
     Active Substance: TACROLIMUS
     Indication: Prophylaxis
     Route: 065
  8. TACROLIMUS [Concomitant]
     Active Substance: TACROLIMUS
     Route: 065
  9. SULFAMETHOXAZOLE\TRIMETHOPRIM [Concomitant]
     Active Substance: SULFAMETHOXAZOLE\TRIMETHOPRIM
     Indication: Prophylaxis
     Dosage: UNK UNK, Q48H (80/450MG)
     Route: 065

REACTIONS (21)
  - Headache [Unknown]
  - Photophobia [Unknown]
  - Eye pain [Unknown]
  - Lacrimation increased [Unknown]
  - Face oedema [Unknown]
  - Hypoaesthesia eye [Unknown]
  - Nausea [Unknown]
  - Epistaxis [Unknown]
  - Vomiting [Unknown]
  - Eyelid ptosis [Unknown]
  - Exophthalmos [Unknown]
  - Visual acuity reduced [Unknown]
  - Intraocular pressure increased [Unknown]
  - Nasal turbinate hypertrophy [Unknown]
  - Cellulitis orbital [Unknown]
  - Sinusitis [Unknown]
  - Palatal ulcer [Unknown]
  - Ischaemia [Unknown]
  - Sinus perforation [Unknown]
  - Disorder of orbit [Unknown]
  - Mucormycosis [Unknown]
